FAERS Safety Report 13531519 (Version 2)
Quarter: 2017Q2

REPORT INFORMATION
  Report Type: Spontaneous
  Country: US (occurrence: US)
  Receive Date: 20170510
  Receipt Date: 20170510
  Transmission Date: 20170830
  Serious: Yes (Other)
  Sender: FDA-Public Use
  Company Number: US-CIPLA LTD.-2017US08201

PATIENT

DRUGS (2)
  1. VALPROIC ACID. [Suspect]
     Active Substance: VALPROIC ACID
     Dosage: UNK
     Route: 065
  2. TOPIRAMATE. [Suspect]
     Active Substance: TOPIRAMATE
     Dosage: UNKNOWN QUANTITY OF MEDICATION
     Route: 048

REACTIONS (4)
  - Toxicity to various agents [Unknown]
  - Acidosis hyperchloraemic [Unknown]
  - Drug level increased [Unknown]
  - Overdose [Unknown]
